FAERS Safety Report 8585127-5 (Version None)
Quarter: 2012Q3

REPORT INFORMATION
  Report Type: 
  Country: None (occurrence: None)
  Receive Date: 20120810
  Receipt Date: 20120801
  Transmission Date: 20120928
  Serious: Yes (Other)
  Sender: FDA-Public Use
  Company Number: PHHO2012KR011434

PATIENT

DRUGS (4)
  1. CERTICAN [Suspect]
  2. MYCOPHENOLIC ACID [Suspect]
     Indication: RENAL TRANSPLANT
  3. SIMULECT [Suspect]
  4. NEORAL [Suspect]
     Indication: RENAL TRANSPLANT

REACTIONS (1)
  - MENTAL DISORDER [None]
